FAERS Safety Report 5014722-5 (Version None)
Quarter: 2006Q2

REPORT INFORMATION
  Report Type: 
  Country: None (occurrence: None)
  Receive Date: 20060531
  Receipt Date: 20060530
  Transmission Date: 20061013
  Serious: Yes (Other)
  Sender: FDA-Public Use
  Company Number: GB-GLAXOSMITHKLINE-B0046469A

PATIENT

DRUGS (6)
  1. PREDNESOL [Suspect]
     Dosage: 20MG PER DAY
  2. SALBUTAMOL [Suspect]
  3. AMOXICILLIN [Suspect]
     Dosage: 500MG THREE TIMES PER DAY
  4. ERYTHROMYCIN [Suspect]
     Dosage: 500MG FOUR TIMES PER DAY
  5. VOLMAX [Suspect]
     Dosage: 4MG PER DAY
  6. ATROVENT [Suspect]
     Route: 055

REACTIONS (2)
  - CATARACT [None]
  - DRUG EXPOSURE DURING PREGNANCY [None]
